FAERS Safety Report 6094279-0 (Version None)
Quarter: 2009Q1

REPORT INFORMATION
  Report Type: 
  Country: None (occurrence: None)
  Receive Date: 20090226
  Receipt Date: 20090220
  Transmission Date: 20090719
  Serious: Yes (Other)
  Sender: FDA-Public Use
  Company Number: US-ELI_LILLY_AND_COMPANY-US200902005252

PATIENT
  Sex: Female

DRUGS (6)
  1. ALIMTA [Suspect]
     Indication: LUNG ADENOCARCINOMA STAGE IV
     Dosage: UNK, OTHER
     Dates: start: 20080101
  2. FOLIC ACID [Concomitant]
     Indication: SUPPLEMENTATION THERAPY
  3. VITAMIN B-12 [Concomitant]
     Indication: SUPPLEMENTATION THERAPY
  4. DECADRON                                /CAN/ [Concomitant]
  5. PAXIL [Concomitant]
  6. NEXIUM [Concomitant]
     Indication: HIATUS HERNIA

REACTIONS (5)
  - ANOREXIA [None]
  - ARTHRALGIA [None]
  - CONVULSION [None]
  - INSOMNIA [None]
  - NAUSEA [None]
